FAERS Safety Report 20757012 (Version 1)
Quarter: 2022Q2

REPORT INFORMATION
  Report Type: Spontaneous
  Country: US (occurrence: US)
  Receive Date: 20220427
  Receipt Date: 20220427
  Transmission Date: 20220721
  Serious: No
  Sender: FDA-Public Use
  Company Number: US-PFIZER INC-202101283160

PATIENT
  Age: 58 Year
  Sex: Male

DRUGS (1)
  1. VIAGRA [Suspect]
     Active Substance: SILDENAFIL CITRATE
     Indication: Organic erectile dysfunction
     Dosage: 100 MG TABLET 1 TABLET AS NEEDED ORALLY ONCE A DAY
     Route: 048

REACTIONS (1)
  - Drug ineffective [Unknown]
